FAERS Safety Report 20634964 (Version 1)
Quarter: 2022Q1

REPORT INFORMATION
  Report Type: Spontaneous
  Country: JP (occurrence: JP)
  Receive Date: 20220325
  Receipt Date: 20220325
  Transmission Date: 20220423
  Serious: Yes (Other)
  Sender: FDA-Public Use
  Company Number: JP-MSD-M2022-11427

PATIENT
  Age: 74 Year
  Sex: Male

DRUGS (1)
  1. KEYTRUDA [Suspect]
     Active Substance: PEMBROLIZUMAB
     Indication: Lung adenocarcinoma recurrent
     Dosage: 200 MILLIGRAM, Q3W
     Route: 041

REACTIONS (6)
  - Peripheral swelling [Unknown]
  - Erythema [Unknown]
  - Conjunctival hyperaemia [Unknown]
  - Dental discomfort [Unknown]
  - Dysgeusia [Unknown]
  - Lacrimation increased [Unknown]

NARRATIVE: CASE EVENT DATE: 20220301
